FAERS Safety Report 23170960 (Version 1)
Quarter: 2023Q4

REPORT INFORMATION
  Report Type: Spontaneous
  Country: US (occurrence: None)
  Receive Date: 20231109
  Receipt Date: 20231109
  Transmission Date: 20240110
  Serious: Yes (Other)
  Sender: FDA-Public Use
  Company Number: None

PATIENT
  Age: 8 Month
  Sex: Male
  Weight: 41.4 kg

DRUGS (1)
  1. LISDEXAMFETAMINE DIMESYLATE [Suspect]
     Active Substance: LISDEXAMFETAMINE DIMESYLATE
     Indication: Attention deficit hyperactivity disorder
     Dosage: 1 DF DOSAGE FORM TWICE A DAY ORAL
     Route: 048
     Dates: start: 20231031, end: 20231031

REACTIONS (2)
  - Aggression [None]
  - Impulsive behaviour [None]

NARRATIVE: CASE EVENT DATE: 20231031
